FAERS Safety Report 22187810 (Version 1)
Quarter: 2023Q2

REPORT INFORMATION
  Report Type: Spontaneous
  Country: CN (occurrence: CN)
  Receive Date: 20230408
  Receipt Date: 20230408
  Transmission Date: 20230722
  Serious: Yes (Other)
  Sender: FDA-Public Use
  Company Number: CN-002147023-NVSC2023CN077889

PATIENT
  Age: 57 Year
  Sex: Female

DRUGS (2)
  1. AZOPT [Suspect]
     Active Substance: BRINZOLAMIDE
     Indication: Glaucoma
     Dosage: 1 MG/KG, TID
     Route: 047
     Dates: start: 20230214, end: 20230327
  2. BRIMONIDINE TARTRATE [Concomitant]
     Active Substance: BRIMONIDINE TARTRATE
     Indication: Glaucoma
     Dosage: 1 DRP, TID
     Route: 047
     Dates: start: 20230214, end: 20230327

REACTIONS (2)
  - Xerophthalmia [Recovering/Resolving]
  - Ocular discomfort [Unknown]

NARRATIVE: CASE EVENT DATE: 20230217
